FAERS Safety Report 11642110 (Version 3)
Quarter: 2015Q4

REPORT INFORMATION
  Report Type: Spontaneous
  Country: JP (occurrence: JP)
  Receive Date: 20151019
  Receipt Date: 20151204
  Transmission Date: 20160304
  Serious: Yes (Disabling)
  Sender: FDA-Public Use
  Company Number: JP-GILEAD-2015-0176151AA

PATIENT
  Age: 70 Year
  Sex: Female
  Weight: 70 kg

DRUGS (6)
  1. REBETOL [Concomitant]
     Active Substance: RIBAVIRIN
     Dosage: UNK
     Route: 048
     Dates: start: 20150917, end: 20151001
  2. CEREGASRON [Concomitant]
     Active Substance: IRSOGLADINE MALEATE
     Dosage: 4 MG, QD
     Route: 048
  3. SOVALDI [Suspect]
     Active Substance: SOFOSBUVIR
     Indication: HEPATIC CIRRHOSIS
     Dosage: 400 MG, QD
     Route: 048
     Dates: start: 20150917, end: 20151001
  4. PROHEPARUM S [Concomitant]
     Dosage: UNK
     Route: 048
  5. A COMPOUNDING AGENT (AZILSARTAN AND AMLODIPINE BESILATE) [Concomitant]
     Dosage: 1 DF, QD
     Route: 048
  6. URSO [Concomitant]
     Active Substance: URSODIOL
     Dosage: 2 DF, QD
     Route: 048

REACTIONS (3)
  - Decreased appetite [Recovered/Resolved]
  - Malaise [Recovered/Resolved]
  - Blood bilirubin increased [Recovered/Resolved]

NARRATIVE: CASE EVENT DATE: 20151001
